FAERS Safety Report 14926913 (Version 1)
Quarter: 2018Q2

REPORT INFORMATION
  Report Type: Spontaneous
  Country: FI (occurrence: FI)
  Receive Date: 20180523
  Receipt Date: 20180523
  Transmission Date: 20180711
  Serious: Yes (Hospitalization, Other)
  Sender: FDA-Public Use
  Company Number: FI-B.I. PHARMACEUTICALS,INC./RIDGEFIELD-2018-BI-026596

PATIENT
  Age: 70 Year
  Sex: Male

DRUGS (1)
  1. PRADAXA [Suspect]
     Active Substance: DABIGATRAN ETEXILATE MESYLATE
     Indication: PROSTHESIS IMPLANTATION
     Route: 065

REACTIONS (7)
  - Haemorrhage [Recovered/Resolved]
  - Pulmonary congestion [Unknown]
  - Hepatic failure [Unknown]
  - Confusional state [Unknown]
  - Post procedural haemorrhage [Recovered/Resolved]
  - Renal failure [Unknown]
  - Hyperkalaemia [Unknown]

NARRATIVE: CASE EVENT DATE: 20180503
